FAERS Safety Report 5952354-2 (Version None)
Quarter: 2008Q4

REPORT INFORMATION
  Report Type: 
  Country: None (occurrence: None)
  Receive Date: 20081113
  Receipt Date: 20081103
  Transmission Date: 20090506
  Serious: Yes (Hospitalization)
  Sender: FDA-Public Use
  Company Number: FR-SANOFI-SYNTHELABO-A02200803311

PATIENT
  Sex: Female

DRUGS (6)
  1. ATARAX [Suspect]
     Indication: DRUG USE FOR UNKNOWN INDICATION
     Route: 048
     Dates: start: 20080116, end: 20080214
  2. TICARPEN [Suspect]
     Indication: EAR INFECTION
     Route: 042
     Dates: start: 20071213, end: 20080210
  3. OFLOCET [Suspect]
     Indication: EAR INFECTION
     Route: 001
     Dates: start: 20080122, end: 20080214
  4. VANCOMYCIN HCL [Suspect]
     Indication: EAR INFECTION
     Dosage: 2 G
     Route: 042
     Dates: start: 20080126, end: 20080204
  5. ZOLPIDEM [Suspect]
     Indication: DRUG USE FOR UNKNOWN INDICATION
     Route: 048
     Dates: start: 20071218, end: 20080214
  6. CIPROFLOXACIN HYDROCHLORIDE [Suspect]
     Indication: EAR INFECTION
     Route: 042
     Dates: start: 20071130, end: 20080210

REACTIONS (13)
  - DRUG ERUPTION [None]
  - DRUG RASH WITH EOSINOPHILIA AND SYSTEMIC SYMPTOMS [None]
  - EAR PAIN [None]
  - EOSINOPHILIA [None]
  - FACE OEDEMA [None]
  - HEADACHE [None]
  - HYPERSENSITIVITY [None]
  - LUNG DISORDER [None]
  - LYMPHADENITIS [None]
  - RASH GENERALISED [None]
  - RASH PUSTULAR [None]
  - RESPIRATORY DISTRESS [None]
  - SKIN EXFOLIATION [None]
